FAERS Safety Report 5252299-X (Version None)
Quarter: 2007Q1

REPORT INFORMATION
  Report Type: 
  Country: None (occurrence: None)
  Receive Date: 20070301
  Receipt Date: 20060127
  Transmission Date: 20070707
  Serious: No
  Sender: FDA-Public Use
  Company Number: US-BRISTOL-MYERS SQUIBB COMPANY-13262316

PATIENT
  Sex: Female
  Weight: 70 kg

DRUGS (6)
  1. TAXOL [Suspect]
     Indication: BREAST CANCER
     Route: 042
     Dates: start: 20051001
  2. CYTOXAN [Concomitant]
     Indication: BREAST CANCER
     Route: 042
  3. ADRIAMYCIN PFS [Concomitant]
     Indication: BREAST CANCER
     Route: 042
  4. ATIVAN [Concomitant]
  5. ELAVIL [Concomitant]
  6. VICODIN [Concomitant]

REACTIONS (1)
  - NEUROPATHY PERIPHERAL [None]
